FAERS Safety Report 8846166 (Version 1)
Quarter: 2012Q4

REPORT INFORMATION
  Report Type: 
  Country: US (occurrence: US)
  Receive Date: 20121017
  Receipt Date: 20121017
  Transmission Date: 20130627
  Serious: Yes (Other)
  Sender: FDA-Public Use
  Company Number: PHEH2012US020204

PATIENT

DRUGS (2)
  1. RECLAST [Suspect]
     Route: 042
  2. RECLAST [Suspect]
     Route: 042
     Dates: start: 201208

REACTIONS (1)
  - Upper limb fracture [Unknown]
